FAERS Safety Report 5685020-1 (Version None)
Quarter: 2008Q1

REPORT INFORMATION
  Report Type: 
  Country: None (occurrence: None)
  Receive Date: 20080328
  Receipt Date: 19970728
  Transmission Date: 20080703
  Serious: Yes (Death, Other)
  Sender: FDA-Public Use
  Company Number: BE-ROCHE-84436

PATIENT
  Age: 71 Year
  Sex: Male

DRUGS (5)
  1. TICLOPIDINE HCL [Suspect]
     Indication: DRUG USE FOR UNKNOWN INDICATION
     Route: 048
     Dates: start: 19961001, end: 19961008
  2. ACETYLSALICYLIC ACID SRT [Concomitant]
     Route: 048
     Dates: start: 19961001, end: 19961008
  3. NISOLDIPINE [Concomitant]
     Route: 048
     Dates: start: 19961001, end: 19961008
  4. METOPROLOL SUCCINATE [Concomitant]
     Route: 048
     Dates: start: 19961001, end: 19961008
  5. METOPROLOL TARTRATE [Concomitant]
     Route: 048
     Dates: start: 19961001, end: 19961008

REACTIONS (2)
  - DEATH [None]
  - RENAL FAILURE [None]
